FAERS Safety Report 12159599 (Version 1)
Quarter: 2016Q1

REPORT INFORMATION
  Report Type: Spontaneous
  Country: US (occurrence: None)
  Receive Date: 20160307
  Receipt Date: 20160307
  Transmission Date: 20160526
  Serious: Yes (Other)
  Sender: FDA-Public Use
  Company Number: None

PATIENT
  Sex: Female
  Weight: 29.94 kg

DRUGS (1)
  1. MONTELUKAST SODIUM 5 MG [Suspect]
     Active Substance: MONTELUKAST SODIUM
     Indication: ASTHMA
     Route: 048
     Dates: start: 201208

REACTIONS (4)
  - Abnormal behaviour [None]
  - Personality change [None]
  - Mood swings [None]
  - Product substitution issue [None]
